FAERS Safety Report 12532215 (Version 1)
Quarter: 2016Q3

REPORT INFORMATION
  Report Type: Spontaneous
  Country: US (occurrence: US)
  Receive Date: 20160706
  Receipt Date: 20160706
  Transmission Date: 20161109
  Serious: No
  Sender: FDA-Public Use
  Company Number: US-ASTRAZENECA-2016SE50037

PATIENT
  Sex: Female

DRUGS (2)
  1. PULMICORT FLEXHALER [Suspect]
     Active Substance: BUDESONIDE
     Dosage: A PUFF WHEN  NEEDED IT
     Route: 055
  2. PULMICORT FLEXHALER [Suspect]
     Active Substance: BUDESONIDE
     Route: 055
     Dates: start: 20150513

REACTIONS (8)
  - Respiratory symptom [Unknown]
  - Drug ineffective [Unknown]
  - Asthma [Unknown]
  - Hypersensitivity [Unknown]
  - Product quality issue [Unknown]
  - Tremor [Unknown]
  - Depressed mood [Unknown]
  - Intentional product misuse [Unknown]
